FAERS Safety Report 7632653-9 (Version None)
Quarter: 2011Q3

REPORT INFORMATION
  Report Type: 
  Country: None (occurrence: None)
  Receive Date: 20110725
  Receipt Date: 20101112
  Transmission Date: 20111222
  Serious: No
  Sender: FDA-Public Use
  Company Number: US-BRISTOL-MYERS SQUIBB COMPANY-15383110

PATIENT
  Sex: Female

DRUGS (5)
  1. METOPROLOL TARTRATE [Concomitant]
  2. LISINOPRIL [Concomitant]
  3. WARFARIN SODIUM [Suspect]
     Indication: ATRIAL FIBRILLATION
  4. LEVOTHYROXINE SODIUM [Suspect]
  5. VERAPAMIL [Concomitant]

REACTIONS (1)
  - INTERNATIONAL NORMALISED RATIO FLUCTUATION [None]
